FAERS Safety Report 10349151 (Version 3)
Quarter: 2015Q2

REPORT INFORMATION
  Report Type: Spontaneous
  Country: US (occurrence: US)
  Receive Date: 20140730
  Receipt Date: 20150626
  Transmission Date: 20150821
  Serious: Yes (Other)
  Sender: FDA-Public Use
  Company Number: US-UCBSA-121304

PATIENT
  Sex: Female
  Weight: 102 kg

DRUGS (1)
  1. NEUPRO [Suspect]
     Active Substance: ROTIGOTINE
     Indication: RESTLESS LEGS SYNDROME
     Dosage: 3 MG, UNK
     Route: 062
     Dates: start: 2013, end: 201405

REACTIONS (1)
  - Anaphylactic reaction [Recovered/Resolved]
